FAERS Safety Report 9394892 (Version 2)
Quarter: 2013Q3

REPORT INFORMATION
  Report Type: Spontaneous
  Country: US (occurrence: US)
  Receive Date: 20130711
  Receipt Date: 20130729
  Transmission Date: 20140515
  Serious: Yes (Hospitalization, Other)
  Sender: FDA-Public Use
  Company Number: US-GENZYME-POMP-1003118

PATIENT
  Age: 26 Year
  Sex: Female

DRUGS (1)
  1. LUMIZYME [Suspect]
     Indication: GLYCOGEN STORAGE DISEASE TYPE II
     Dosage: UNK
     Route: 042

REACTIONS (2)
  - Pulmonary hypertension [Unknown]
  - Headache [Unknown]
